FAERS Safety Report 7134454-7 (Version None)
Quarter: 2010Q4

REPORT INFORMATION
  Report Type: 
  Country: None (occurrence: None)
  Receive Date: 20101203
  Receipt Date: 20101125
  Transmission Date: 20110411
  Serious: Yes (Hospitalization)
  Sender: FDA-Public Use
  Company Number: IL-NOVEN-10IL001416

PATIENT
  Age: 79 Year
  Sex: Female

DRUGS (3)
  1. PAROXETINE [Suspect]
     Dosage: UNK
  2. AZILECT [Concomitant]
     Indication: PARKINSON'S DISEASE
     Dosage: UNK
     Dates: start: 20100301
  3. STALEVO 100 [Concomitant]
     Dosage: UNK
     Dates: start: 20080101

REACTIONS (6)
  - AMNESIA [None]
  - FALL [None]
  - LOSS OF CONSCIOUSNESS [None]
  - PELVIC FRACTURE [None]
  - SKIN INJURY [None]
  - SYNCOPE [None]
